FAERS Safety Report 14356753 (Version 1)
Quarter: 2018Q1

REPORT INFORMATION
  Report Type: Spontaneous
  Country: US (occurrence: US)
  Receive Date: 20180104
  Receipt Date: 20180104
  Transmission Date: 20180509
  Serious: Yes (Other)
  Sender: FDA-Public Use
  Company Number: None

PATIENT
  Age: 49 Year
  Sex: Female

DRUGS (1)
  1. METHOTREXATE SOD SDV 25MG/ML TEVA [Suspect]
     Active Substance: METHOTREXATE SODIUM
     Indication: ILL-DEFINED DISORDER
     Dosage: INJECT 0.8 ML (20 MG TOTAL) ONCE A WEEK UNDER THE SKIN
     Route: 058
     Dates: start: 20170524, end: 20180104

REACTIONS (1)
  - Alopecia [None]

NARRATIVE: CASE EVENT DATE: 20180104
